FAERS Safety Report 6813931-X (Version None)
Quarter: 2010Q3

REPORT INFORMATION
  Report Type: 
  Country: None (occurrence: None)
  Receive Date: 20100702
  Receipt Date: 20090721
  Transmission Date: 20110219
  Serious: Yes (Other)
  Sender: FDA-Public Use
  Company Number: US-ASTRAZENECA-2008UW03582

PATIENT
  Age: 12695 Day
  Sex: Female
  Weight: 77.1 kg

DRUGS (16)
  1. SEROQUEL [Suspect]
     Dosage: 25 MG, 100 MG AND 200 MG DISPENSED
     Route: 048
     Dates: start: 20040324
  2. NEURONTIN [Concomitant]
     Dates: start: 20040203
  3. NEURONTIN [Concomitant]
     Dates: start: 20040415
  4. EFFEXOR [Concomitant]
     Dates: start: 20040121
  5. CLONAZEPAM [Concomitant]
     Dates: start: 20040302
  6. PLAVIX [Concomitant]
     Dates: start: 20040421
  7. METOPROLOL TARTRATE [Concomitant]
     Indication: CORONARY ARTERY DISEASE
     Dates: start: 20040504
  8. RISPERDAL [Concomitant]
     Dosage: 1 MG ,3 MG DISPENSED
     Dates: start: 20040413
  9. ABILIFY [Concomitant]
     Dates: start: 20060221
  10. GEMFIBROZIL [Concomitant]
     Dates: start: 20060221
  11. MEVACOR [Concomitant]
     Indication: HYPERLIPIDAEMIA
     Dates: start: 20060221
  12. ALPRAZOLAM [Concomitant]
     Dates: start: 20040121
  13. ZYPREXA [Concomitant]
     Dosage: 10 MG, 15 MG DISPENSED
     Dates: start: 20040324
  14. TRAZODONE HYDROCHLORIDE [Concomitant]
     Dates: start: 20040506
  15. TOPAMAX [Concomitant]
     Dates: start: 20040603
  16. TOPAMAX [Concomitant]
     Dates: start: 20040519

REACTIONS (2)
  - DIABETES MELLITUS [None]
  - NEUROPATHY PERIPHERAL [None]
